FAERS Safety Report 11767780 (Version 1)
Quarter: 2015Q4

REPORT INFORMATION
  Report Type: Spontaneous
  Country: US (occurrence: US)
  Receive Date: 20151123
  Receipt Date: 20151123
  Transmission Date: 20160304
  Serious: No
  Sender: FDA-Public Use
  Company Number: US-GLAXOSMITHKLINE-US2015GSK162756

PATIENT
  Sex: Male

DRUGS (1)
  1. TANZEUM [Suspect]
     Active Substance: ALBIGLUTIDE
     Indication: GLUCOSE TOLERANCE IMPAIRED
     Dosage: 30 MG, WE
     Dates: start: 20151112

REACTIONS (2)
  - Injection site haemorrhage [Recovering/Resolving]
  - Off label use [Unknown]
